FAERS Safety Report 24164657 (Version 1)
Quarter: 2024Q3

REPORT INFORMATION
  Report Type: Spontaneous
  Country: GR (occurrence: GR)
  Receive Date: 20240801
  Receipt Date: 20240801
  Transmission Date: 20241016
  Serious: Yes (Other)
  Sender: BRISTOL MYERS SQUIBB
  Company Number: GR-CELGENE-GRC-20191102933

PATIENT

DRUGS (3)
  1. REVLIMID [Suspect]
     Active Substance: LENALIDOMIDE
     Indication: Amyloidosis
     Dosage: FREQUENCY TEXT: DAYS 1-21
     Route: 048
  2. DEXAMETHASONE [Concomitant]
     Active Substance: DEXAMETHASONE
     Indication: Amyloidosis
     Dosage: 20 MILLIGRAM
  3. BORTEZOMIB [Concomitant]
     Active Substance: BORTEZOMIB
     Indication: Amyloidosis
     Dosage: FREQUENCY TEXT: DAYS 1, 8 AND 15
     Route: 058

REACTIONS (1)
  - Cardiac ventricular thrombosis [Unknown]
